FAERS Safety Report 5809606-6 (Version None)
Quarter: 2008Q3

REPORT INFORMATION
  Report Type: 
  Country: None (occurrence: None)
  Receive Date: 20080715
  Receipt Date: 20080707
  Transmission Date: 20090109
  Serious: Yes (Other)
  Sender: FDA-Public Use
  Company Number: DE-ROCHE-570665

PATIENT
  Sex: Female
  Weight: 76 kg

DRUGS (2)
  1. BONIVA [Suspect]
     Indication: OSTEOPOROSIS
     Dosage: GIVEN BY MISTAKE (MALADMINISTRATION)
     Route: 050
  2. BONIVA [Suspect]
     Route: 050

REACTIONS (5)
  - DRUG ADMINISTRATION ERROR [None]
  - ERYTHEMA [None]
  - JOINT RANGE OF MOTION DECREASED [None]
  - MUSCULOSKELETAL PAIN [None]
  - SWELLING [None]
